FAERS Safety Report 7202061-3 (Version None)
Quarter: 2010Q4

REPORT INFORMATION
  Report Type: 
  Country: None (occurrence: None)
  Receive Date: 20101229
  Receipt Date: 20101217
  Transmission Date: 20110411
  Serious: Yes (Hospitalization)
  Sender: FDA-Public Use
  Company Number: GB-WATSON-2010-16254

PATIENT
  Age: 27 Year
  Sex: Female

DRUGS (1)
  1. PROPRANOLOL [Suspect]
     Indication: INTENTIONAL OVERDOSE
     Dosage: 7 G, SINGLE
     Route: 048

REACTIONS (7)
  - BRADYCARDIA [None]
  - CIRCULATORY COLLAPSE [None]
  - COMA [None]
  - ELECTROCARDIOGRAM QT PROLONGED [None]
  - GRAND MAL CONVULSION [None]
  - HYPOTENSION [None]
  - OVERDOSE [None]
